FAERS Safety Report 7979835 (Version 3)
Quarter: 2014Q1

REPORT INFORMATION
  Report Type: Report from Study
  Country: JP (occurrence: JP)
  Receive Date: 20110608
  Receipt Date: 20140205
  Transmission Date: 20141002
  Serious: Yes (Death, Other)
  Sender: FDA-Public Use
  Company Number: JP-CELGENEUS-087-21880-11053047

PATIENT
  Age: 75 Year
  Sex: Male

DRUGS (17)
  1. REVLIMID [Suspect]
     Indication: 5Q MINUS SYNDROME
     Dosage: 5 MILLIGRAM
     Route: 048
     Dates: start: 20101202, end: 20101204
  2. REVLIMID [Suspect]
     Dosage: 5 MILLIGRAM
     Route: 048
     Dates: start: 20110114, end: 20110114
  3. REVLIMID [Suspect]
     Dosage: 5 MILLIGRAM
     Route: 048
     Dates: start: 20110118, end: 20110118
  4. BAYASPIRIN [Concomitant]
     Indication: CARDIAC DISORDER
     Route: 048
     Dates: start: 20060323, end: 20110118
  5. ARTIST [Concomitant]
     Indication: HYPERTENSION
     Route: 048
     Dates: start: 20060518, end: 20110118
  6. NU-LOTAN [Concomitant]
     Indication: HYPERTENSION
     Route: 048
     Dates: start: 20090312, end: 20110118
  7. CIBENOL [Concomitant]
     Indication: HYPERTENSION
     Route: 048
     Dates: start: 20070419, end: 20110118
  8. CIBENOL [Concomitant]
     Indication: ATRIAL FIBRILLATION
  9. CRESTOR [Concomitant]
     Indication: HYPERLIPIDAEMIA
     Route: 048
     Dates: start: 20081204, end: 20110118
  10. ITOROL [Concomitant]
     Indication: CARDIAC DISORDER
     Route: 048
     Dates: start: 20090319, end: 20110118
  11. ZYLORIC [Concomitant]
     Indication: ILL-DEFINED DISORDER
     Route: 048
     Dates: start: 20101127, end: 20110118
  12. NOVOLIN 30R [Concomitant]
     Indication: DIABETES MELLITUS
     Dosage: 14 UNITS
     Route: 030
     Dates: start: 20060323, end: 20110118
  13. ALLELOCK [Concomitant]
     Indication: ILL-DEFINED DISORDER
     Route: 048
     Dates: start: 20101129, end: 20110118
  14. GRAN [Concomitant]
     Indication: ILL-DEFINED DISORDER
     Dosage: 75 MILLIGRAM
     Route: 030
     Dates: start: 20101129, end: 20101208
  15. NESP [Concomitant]
     Indication: RENAL FAILURE CHRONIC
     Route: 030
     Dates: start: 20101206, end: 20110126
  16. PLATELETS [Concomitant]
     Indication: ILL-DEFINED DISORDER
     Dosage: 10 UNITS
     Route: 041
     Dates: start: 20101202, end: 20110113
  17. PLATELETS [Concomitant]
     Dosage: 10 UNITS
     Route: 041
     Dates: start: 20110117, end: 20110117

REACTIONS (6)
  - Renal failure [Fatal]
  - Deafness neurosensory [Recovering/Resolving]
  - Hepatic function abnormal [Recovered/Resolved]
  - Hyperkalaemia [Recovered/Resolved]
  - Hyponatraemia [Recovered/Resolved]
  - Nasopharyngitis [Recovered/Resolved]
